FAERS Safety Report 17080210 (Version 1)
Quarter: 2019Q4

REPORT INFORMATION
  Report Type: Spontaneous
  Country: GB (occurrence: GB)
  Receive Date: 20191127
  Receipt Date: 20191127
  Transmission Date: 20200122
  Serious: Yes (Other)
  Sender: FDA-Public Use
  Company Number: GB-TEVA-2019-GB-1142107

PATIENT
  Age: 58 Year
  Sex: Male
  Weight: 69.85 kg

DRUGS (2)
  1. MORPHINE [Suspect]
     Active Substance: MORPHINE
     Indication: PROCEDURAL PAIN
     Dosage: DURING 7 HOUR OPERATION AND BY THEN BY PATIENT CONTROLLED ANALGESIA.
     Dates: start: 20181107, end: 20181109
  2. NAPROXEN. [Concomitant]
     Active Substance: NAPROXEN
     Indication: BACK PAIN
     Dosage: STOPPED BEFORE ADMISSION.

REACTIONS (3)
  - Paranoia [Recovered/Resolved]
  - Nystagmus [Unknown]
  - Visual impairment [Recovered/Resolved]

NARRATIVE: CASE EVENT DATE: 20181108
